FAERS Safety Report 5515948-4 (Version None)
Quarter: 2007Q4

REPORT INFORMATION
  Report Type: 
  Country: None (occurrence: None)
  Receive Date: 20071114
  Receipt Date: 20071105
  Transmission Date: 20080405
  Serious: Yes (Hospitalization)
  Sender: FDA-Public Use
  Company Number: JP-ASTRAZENECA-2007AP03275

PATIENT
  Age: 50 Year
  Sex: Male

DRUGS (2)
  1. XYLOCAINE [Suspect]
     Route: 065
  2. ADALAT [Concomitant]
     Indication: HYPERTENSION
     Dosage: 1/3 OF A CAPSULE 10 MG

REACTIONS (1)
  - SHOCK [None]
